FAERS Safety Report 7901749 (Version 7)
Quarter: 2013Q2

REPORT INFORMATION
  Report Type: Report from Study
  Country: IT (occurrence: IT)
  Receive Date: 20110415
  Receipt Date: 20130405
  Transmission Date: 20140414
  Serious: Yes (Hospitalization, Other)
  Sender: FDA-Public Use
  Company Number: IT-ABBOTT-11P-083-0717364-02

PATIENT
  Age: 32 Year
  Sex: Male
  Weight: 102 kg

DRUGS (5)
  1. HUMIRA [Suspect]
     Indication: CROHN^S DISEASE
     Dosage: 160 MG (BASELINE)/80 MG (WEEK 2)
     Route: 058
     Dates: start: 20090526, end: 20100330
  2. HUMIRA [Suspect]
     Route: 058
     Dates: start: 20100427
  3. HUMIRA [Suspect]
     Route: 058
     Dates: start: 20110405
  4. COUMADIN [Concomitant]
     Indication: ANTICOAGULANT THERAPY
     Dosage: VARIABLE, DEPENDING ON INR RESULTS
     Dates: start: 20110207
  5. MESALAZINE [Concomitant]
     Indication: CROHN^S DISEASE
     Dates: start: 199505

REACTIONS (2)
  - Anaemia [Recovered/Resolved]
  - Rectal haemorrhage [Recovered/Resolved]
